FAERS Safety Report 11468855 (Version 1)
Quarter: 2015Q3

REPORT INFORMATION
  Report Type: Spontaneous
  Country: US (occurrence: None)
  Receive Date: 20150828
  Receipt Date: 20150828
  Transmission Date: 20151125
  Serious: Yes (Other)
  Sender: FDA-Public Use
  Company Number: AMAG2012400462

PATIENT
  Age: 59 Year
  Sex: Male
  Weight: 122.4 kg

DRUGS (9)
  1. FERAHEME [Suspect]
     Active Substance: FERUMOXYTOL NON-STOICHIOMETRIC MAGNETITE
     Indication: IRON DEFICIENCY ANAEMIA
     Dosage: IV PUSH
     Dates: start: 20140421, end: 20140421
  2. VENOFER (SACCHARATED IRON OXIDE) [Concomitant]
  3. ALLOPURINOL. [Concomitant]
     Active Substance: ALLOPURINOL
  4. VITAMIN D3 [Concomitant]
     Active Substance: CHOLECALCIFEROL
  5. DIGOXIN. [Concomitant]
     Active Substance: DIGOXIN
  6. DILTIAZEM (DILTIAZEM HYDROCHLORIDE) [Concomitant]
  7. METHIMAZOLE. [Concomitant]
     Active Substance: METHIMAZOLE
  8. AMIODARONE (AMIODARONE HYDROCHLORIDE) [Concomitant]
  9. RIVAROXABAN [Concomitant]
     Active Substance: RIVAROXABAN

REACTIONS (1)
  - Anaphylactic reaction [None]

NARRATIVE: CASE EVENT DATE: 20140421
